FAERS Safety Report 20411901 (Version 2)
Quarter: 2022Q1

REPORT INFORMATION
  Report Type: Spontaneous
  Country: TW (occurrence: TW)
  Receive Date: 20220201
  Receipt Date: 20220222
  Transmission Date: 20220424
  Serious: Yes (Hospitalization, Other)
  Sender: FDA-Public Use
  Company Number: TW-BIOMARINAP-TW-2022-141206

PATIENT
  Age: 44 Year
  Sex: Female

DRUGS (2)
  1. LARONIDASE [Suspect]
     Active Substance: LARONIDASE
     Indication: Product used for unknown indication
     Dosage: 8 DF, QW
     Route: 042
     Dates: start: 20220113, end: 20220113
  2. LARONIDASE [Suspect]
     Active Substance: LARONIDASE
     Dosage: 8 DF, QW
     Route: 042
     Dates: start: 20220127, end: 20220127

REACTIONS (4)
  - Myalgia [Not Recovered/Not Resolved]
  - Pain [Not Recovered/Not Resolved]
  - Lumbar vertebral fracture [Not Recovered/Not Resolved]
  - Pain [Not Recovered/Not Resolved]

NARRATIVE: CASE EVENT DATE: 20220101
